FAERS Safety Report 9195118 (Version 1)
Quarter: 2013Q1

REPORT INFORMATION
  Report Type: Spontaneous
  Country: US (occurrence: US)
  Receive Date: 20130328
  Receipt Date: 20130328
  Transmission Date: 20140127
  Serious: No
  Sender: FDA-Public Use
  Company Number: US-ALLERGAN-1208547US

PATIENT
  Sex: Male

DRUGS (4)
  1. LUMIGAN [Suspect]
     Indication: GLAUCOMA
     Dosage: 1 GTT OS, QHS
     Route: 047
     Dates: start: 2009, end: 20120614
  2. COMBIGAN[R] [Suspect]
     Indication: INTRAOCULAR PRESSURE INCREASED
     Dosage: 1 GTT OU, BID
     Route: 047
  3. COMBIGAN[R] [Suspect]
     Indication: GLAUCOMA
  4. ZIOPTAN [Concomitant]
     Indication: INTRAOCULAR PRESSURE INCREASED
     Dosage: UNK
     Route: 047

REACTIONS (2)
  - Scleral hyperaemia [Recovered/Resolved]
  - Eye pain [Recovered/Resolved]
